FAERS Safety Report 9466129 (Version 1)
Quarter: 2013Q3

REPORT INFORMATION
  Report Type: Spontaneous
  Country: US (occurrence: None)
  Receive Date: 20130816
  Receipt Date: 20130816
  Transmission Date: 20140515
  Serious: Yes (Other)
  Sender: FDA-Public Use
  Company Number: None

PATIENT
  Age: 71 Year
  Sex: Female
  Weight: 76.4 kg

DRUGS (9)
  1. ERLOTINIB [Suspect]
     Indication: NON-SMALL CELL LUNG CANCER
     Dosage: 150MG  PO  QD
     Route: 048
     Dates: start: 20130625, end: 20130806
  2. CHLORPHEN-PHENYLTOTOX-PE [Concomitant]
  3. ACETAMINOPHEN [Concomitant]
  4. VITAMIN D3 CHOLECALCIFEROL) [Concomitant]
  5. PROCHLORPERAZINE [Concomitant]
  6. ONDANSETRON [Concomitant]
  7. LIPITOR (ATORVASTATIN) [Concomitant]
  8. AMLODIPINE (NORVASC) [Concomitant]
  9. HYDROCHLOROTHIAZIDE [Concomitant]

REACTIONS (2)
  - Alanine aminotransferase increased [None]
  - Aspartate aminotransferase increased [None]
